FAERS Safety Report 23189697 (Version 1)
Quarter: 2023Q4

REPORT INFORMATION
  Report Type: Spontaneous
  Country: CN (occurrence: CN)
  Receive Date: 20231116
  Receipt Date: 20231116
  Transmission Date: 20240110
  Serious: Yes (Other)
  Sender: FDA-Public Use
  Company Number: CN-002147023- NVSC2023CN240515

PATIENT
  Age: 65 Year
  Sex: Female
  Weight: 70 kg

DRUGS (4)
  1. ACLASTA [Suspect]
     Active Substance: ZOLEDRONIC ACID
     Indication: Osteoporosis
     Dosage: 100 ML, Q12MO
     Route: 042
     Dates: start: 20231101, end: 20231106
  2. METHYLPREDNISOLONE [Concomitant]
     Active Substance: METHYLPREDNISOLONE
     Indication: Product used for unknown indication
     Dosage: UNK (1 BOTTLE)
     Route: 065
  3. ACETAMINOPHEN [Concomitant]
     Active Substance: ACETAMINOPHEN
     Indication: Product used for unknown indication
     Dosage: 2 DF
     Route: 065
  4. SODIUM CHLORIDE [Concomitant]
     Active Substance: SODIUM CHLORIDE
     Indication: Product used for unknown indication
     Dosage: UNK (1 BOTTLE)
     Route: 065

REACTIONS (5)
  - Scleritis [Not Recovered/Not Resolved]
  - Hyperpyrexia [Unknown]
  - Pyrexia [Unknown]
  - Pain [Unknown]
  - Eye pain [Unknown]

NARRATIVE: CASE EVENT DATE: 20231104
